FAERS Safety Report 5674485-7 (Version None)
Quarter: 2008Q1

REPORT INFORMATION
  Report Type: 
  Country: None (occurrence: None)
  Receive Date: 20080317
  Receipt Date: 20080228
  Transmission Date: 20080703
  Serious: Yes (Life-Threatening)
  Sender: FDA-Public Use
  Company Number: 2008EU000279

PATIENT
  Age: 52 Year
  Sex: Female

DRUGS (10)
  1. PROGRAF [Suspect]
     Indication: LIVER TRANSPLANT
     Dosage: 2 DF, UID/QD, ORAL
     Route: 048
     Dates: start: 20071104, end: 20071130
  2. OFLOXACIN [Suspect]
     Dosage: 2 DF, UID/QD,
     Dates: start: 20071104, end: 20071120
  3. VANCOMYCIN [Suspect]
     Dosage: 2 G, UID/QD, IV NOS
     Route: 042
     Dates: start: 20071104, end: 20071120
  4. CELLCEPT [Concomitant]
  5. GANCICLOVIR [Concomitant]
  6. LASIX [Concomitant]
  7. INSULIN (INSULIN HUMAN) [Concomitant]
  8. PREDNISOLONE [Concomitant]
  9. MOPRAL [Concomitant]
  10. SPASFON          (PHLOROGLUCINOL, TRIMETHYLPHLOROGLUCINOL) [Concomitant]

REACTIONS (1)
  - ISCHAEMIC CEREBRAL INFARCTION [None]
